FAERS Safety Report 23410996 (Version 1)
Quarter: 2024Q1

REPORT INFORMATION
  Report Type: Spontaneous
  Country: PT (occurrence: PT)
  Receive Date: 20240117
  Receipt Date: 20240117
  Transmission Date: 20240409
  Serious: Yes (Hospitalization, Other)
  Sender: FDA-Public Use
  Company Number: PT-TEVA-VS-3144239

PATIENT
  Age: 61 Year

DRUGS (1)
  1. FLUOROURACIL [Suspect]
     Active Substance: FLUOROURACIL
     Route: 065

REACTIONS (5)
  - Drug interaction [Unknown]
  - Thrombocytopenia [Unknown]
  - Neutropenia [Unknown]
  - Alopecia [Unknown]
  - Mucosal inflammation [Unknown]
